FAERS Safety Report 21026006 (Version 1)
Quarter: 2022Q2

REPORT INFORMATION
  Report Type: Other
  Country: EG (occurrence: EG)
  Receive Date: 20220630
  Receipt Date: 20220630
  Transmission Date: 20220721
  Serious: Yes (Other)
  Sender: FDA-Public Use
  Company Number: EG-002147023-NVSC2022EG139486

PATIENT
  Age: 27 Year
  Sex: Female

DRUGS (1)
  1. XOLAIR [Suspect]
     Active Substance: OMALIZUMAB
     Indication: Urticaria
     Dosage: 2 DOSAGE FORM, QMO FOR 4 MONTHS
     Route: 058
     Dates: start: 20220614

REACTIONS (3)
  - Dyspnoea [Not Recovered/Not Resolved]
  - Urticaria [Not Recovered/Not Resolved]
  - Pruritus [Not Recovered/Not Resolved]

NARRATIVE: CASE EVENT DATE: 20220614
